FAERS Safety Report 12677172 (Version 2)
Quarter: 2016Q3

REPORT INFORMATION
  Report Type: Spontaneous
  Country: US (occurrence: US)
  Receive Date: 20160823
  Receipt Date: 20160928
  Transmission Date: 20161109
  Serious: Yes (Hospitalization)
  Sender: FDA-Public Use
  Company Number: US-PFIZER INC-2016396374

PATIENT
  Age: 68 Year
  Sex: Female
  Weight: 48.99 kg

DRUGS (1)
  1. IBRANCE [Suspect]
     Active Substance: PALBOCICLIB
     Indication: BREAST CANCER
     Dosage: 125 MG, CYCLIC (DAILY FOR 21 DAYS AND THEN OFF FOR A WEEK)
     Route: 048
     Dates: start: 20160714, end: 2016

REACTIONS (2)
  - Renal failure [Recovering/Resolving]
  - Blood count abnormal [Unknown]

NARRATIVE: CASE EVENT DATE: 2016
